FAERS Safety Report 14307837 (Version 3)
Quarter: 2020Q4

REPORT INFORMATION
  Report Type: Spontaneous
  Country: ES (occurrence: ES)
  Receive Date: 20171220
  Receipt Date: 20201210
  Transmission Date: 20210113
  Serious: Yes (Hospitalization, Other)
  Sender: FDA-Public Use
  Company Number: ES-MYLANLABS-2017M1079660

PATIENT
  Age: 78 Year
  Sex: Male

DRUGS (6)
  1. ERTAPENEM. [Interacting]
     Active Substance: ERTAPENEM SODIUM
     Indication: PYREXIA
     Dosage: 1 G, QD
     Route: 042
     Dates: start: 20170929, end: 20171002
  2. QUETIAPINE. [Suspect]
     Active Substance: QUETIAPINE
     Indication: AGITATION
     Dosage: 25 MG, QD
     Route: 048
     Dates: start: 20170928, end: 20171003
  3. QUETIAPINE. [Interacting]
     Active Substance: QUETIAPINE
     Indication: PSYCHOMOTOR HYPERACTIVITY
  4. ERTAPENEM. [Interacting]
     Active Substance: ERTAPENEM SODIUM
     Indication: URINARY TRACT INFECTION
  5. MEROPENEM. [Interacting]
     Active Substance: MEROPENEM
     Indication: PYREXIA
     Dosage: 3 G, QD
     Route: 042
     Dates: start: 20171002, end: 20171010
  6. MEROPENEM. [Interacting]
     Active Substance: MEROPENEM
     Indication: URINARY TRACT INFECTION

REACTIONS (4)
  - Drug interaction [Unknown]
  - Product use in unapproved indication [Unknown]
  - Off label use [Unknown]
  - Encephalopathy [Recovered/Resolved]

NARRATIVE: CASE EVENT DATE: 20171002
